FAERS Safety Report 6356431-6 (Version None)
Quarter: 2009Q3

REPORT INFORMATION
  Report Type: 
  Country: None (occurrence: None)
  Receive Date: 20090915
  Receipt Date: 20090907
  Transmission Date: 20100115
  Serious: Yes (Hospitalization)
  Sender: FDA-Public Use
  Company Number: FR-ASTRAZENECA-2009SE05322

PATIENT
  Age: 19487 Day
  Sex: Female

DRUGS (16)
  1. INEXIUM [Suspect]
     Route: 048
     Dates: start: 20090420
  2. NEXAVAR [Suspect]
     Route: 048
     Dates: start: 20090519, end: 20090624
  3. NEURONTIN [Suspect]
     Route: 048
     Dates: end: 20090426
  4. NEURONTIN [Suspect]
     Route: 048
     Dates: start: 20090427
  5. SOPHIDONE LP [Suspect]
     Route: 048
     Dates: start: 20090622
  6. ANAFRANIL [Suspect]
     Route: 048
     Dates: end: 20090426
  7. ANAFRANIL [Suspect]
     Route: 042
     Dates: start: 20090427
  8. OXYNORM [Suspect]
     Route: 048
     Dates: start: 20090421
  9. PRAZEPAM [Suspect]
     Route: 048
     Dates: start: 20090418
  10. DAFALGAN [Suspect]
     Route: 048
     Dates: start: 20090622
  11. PRIMPERAN [Suspect]
     Route: 048
     Dates: start: 20090420
  12. MAGNE B6 [Suspect]
     Dosage: 100MG/10MG 4/DAY
     Route: 048
     Dates: start: 20090506
  13. LANSOYL [Suspect]
     Route: 048
     Dates: start: 20090418
  14. KETAMINE HCL [Suspect]
     Route: 042
     Dates: start: 20090623, end: 20090626
  15. BICARBONATE [Concomitant]
     Route: 048
  16. MYCOSTATIN [Concomitant]
     Route: 048

REACTIONS (3)
  - BLOOD ALKALINE PHOSPHATASE INCREASED [None]
  - GAMMA-GLUTAMYLTRANSFERASE INCREASED [None]
  - TRANSAMINASES INCREASED [None]
